FAERS Safety Report 9330762 (Version 3)
Quarter: 2015Q2

REPORT INFORMATION
  Report Type: Spontaneous
  Country: US (occurrence: US)
  Receive Date: 20130605
  Receipt Date: 20150430
  Transmission Date: 20150821
  Serious: Yes (Life-Threatening)
  Sender: FDA-Public Use
  Company Number: US-BAYER-2013-066382

PATIENT
  Age: 25 Year
  Sex: Female
  Weight: 95 kg

DRUGS (1)
  1. MIRENA [Suspect]
     Active Substance: LEVONORGESTREL
     Indication: CONTRACEPTION
     Dosage: 20 MCG/24HR, CONT
     Route: 015
     Dates: start: 20090625, end: 20110810

REACTIONS (13)
  - Injury [None]
  - Mobility decreased [None]
  - Anhedonia [None]
  - Abdominal pain lower [None]
  - Activities of daily living impaired [None]
  - Anxiety [None]
  - Emotional distress [None]
  - Depression [None]
  - General physical health deterioration [None]
  - Pain [None]
  - Uterine perforation [None]
  - Pelvic pain [None]
  - Medical device pain [None]

NARRATIVE: CASE EVENT DATE: 201108
